FAERS Safety Report 6417877-0 (Version None)
Quarter: 2009Q4

REPORT INFORMATION
  Report Type: 
  Country: None (occurrence: None)
  Receive Date: 20091028
  Receipt Date: 20091023
  Transmission Date: 20100525
  Serious: Yes (Disabling)
  Sender: FDA-Public Use
  Company Number: A0813179A

PATIENT
  Age: 66 Year
  Sex: Female

DRUGS (3)
  1. ADVAIR DISKUS 100/50 [Suspect]
     Dosage: 2PUFF TWICE PER DAY
     Route: 055
     Dates: start: 20080101, end: 20080101
  2. ADVAIR DISKUS 100/50 [Suspect]
     Route: 055
     Dates: start: 20080101, end: 20080101
  3. UNSPECIFIED MEDICATION [Concomitant]

REACTIONS (5)
  - DISTURBANCE IN ATTENTION [None]
  - DRUG INEFFECTIVE [None]
  - HALLUCINATION [None]
  - HEADACHE [None]
  - MOBILITY DECREASED [None]
